FAERS Safety Report 19747256 (Version 6)
Quarter: 2022Q2

REPORT INFORMATION
  Report Type: Spontaneous
  Country: CH (occurrence: CH)
  Receive Date: 20210825
  Receipt Date: 20220531
  Transmission Date: 20220721
  Serious: Yes (Death, Hospitalization, Disabling, Other)
  Sender: FDA-Public Use
  Company Number: None

PATIENT
  Age: 70 Year
  Sex: Female
  Weight: 80 kg

DRUGS (8)
  1. COMIRNATY [Suspect]
     Active Substance: TOZINAMERAN
     Indication: COVID-19 immunisation
     Dosage: DOSE 3 (BOOSTER), 0.3 ML, SINGLE
     Dates: start: 202112, end: 202112
  2. COMIRNATY [Suspect]
     Active Substance: TOZINAMERAN
     Dosage: DOSE 2, 0.3 ML, SINGLE
     Route: 030
     Dates: start: 202102, end: 202102
  3. COMIRNATY [Suspect]
     Active Substance: TOZINAMERAN
     Dosage: DOSE 1, 0.3 ML, SINGLE
  4. INLYTA [Suspect]
     Active Substance: AXITINIB
     Indication: Renal cancer metastatic
     Dosage: UNKNOWN
  5. INLYTA [Suspect]
     Active Substance: AXITINIB
     Dosage: UNKNOWN
  6. KEYTRUDA [Suspect]
     Active Substance: PEMBROLIZUMAB
     Indication: Renal cancer metastatic
     Dosage: 100MG/4ML, 3 WEEKLY
     Dates: start: 20201021, end: 20210617
  7. ZOLPIDEM [Suspect]
     Active Substance: ZOLPIDEM TARTRATE
     Dosage: 10 MG
  8. AMLODIPINE BESYLATE\OLMESARTAN MEDOXOMIL [Concomitant]
     Active Substance: AMLODIPINE BESYLATE\OLMESARTAN MEDOXOMIL
     Dosage: UNKNOWN

REACTIONS (52)
  - COVID-19 [Fatal]
  - Drug ineffective [Fatal]
  - Encephalitis autoimmune [Fatal]
  - Death [Fatal]
  - Malignant neoplasm progression [Unknown]
  - Chorea [Not Recovered/Not Resolved]
  - Gaze palsy [Not Recovered/Not Resolved]
  - Immune-mediated encephalitis [Not Recovered/Not Resolved]
  - Fatigue [Not Recovered/Not Resolved]
  - Visual impairment [Unknown]
  - Gait disturbance [Unknown]
  - Fall [Unknown]
  - Urge incontinence [Unknown]
  - Leukoencephalopathy [Unknown]
  - Haematuria [Recovered/Resolved]
  - CSF protein increased [Unknown]
  - Pollakiuria [Unknown]
  - Atonic urinary bladder [Unknown]
  - Intraocular pressure increased [Unknown]
  - Eye disorder [Unknown]
  - Cataract operation [Unknown]
  - Paresis [Not Recovered/Not Resolved]
  - Hypochloraemia [Unknown]
  - Cerebral atrophy [Unknown]
  - Inappropriate antidiuretic hormone secretion [Unknown]
  - Spinal disorder [Unknown]
  - Hypertensive heart disease [Unknown]
  - Executive dysfunction [Unknown]
  - Intervertebral disc disorder [Unknown]
  - Hypokalaemia [Unknown]
  - Cerebral disorder [Unknown]
  - Immunosuppression [Unknown]
  - Mental disorder [Unknown]
  - Hypertension [Unknown]
  - Diarrhoea [Unknown]
  - Asthenia [Unknown]
  - Listless [Unknown]
  - Chills [Unknown]
  - Bladder irritation [Unknown]
  - Somatosensory evoked potentials abnormal [Unknown]
  - Pulmonary arterial pressure increased [Unknown]
  - Vertigo [Unknown]
  - Dysarthria [Unknown]
  - Eyelid ptosis [Unknown]
  - Ballismus [Unknown]
  - Hyponatraemia [Unknown]
  - IIIrd nerve disorder [Unknown]
  - Areflexia [Unknown]
  - Oedema peripheral [Unknown]
  - General physical health deterioration [Unknown]
  - Pleural effusion [Unknown]
  - Coagulopathy [Unknown]

NARRATIVE: CASE EVENT DATE: 20210101
